FAERS Safety Report 23682247 (Version 3)
Quarter: 2025Q3

REPORT INFORMATION
  Report Type: Report from Study
  Country: CA (occurrence: CA)
  Receive Date: 20240328
  Receipt Date: 20250702
  Transmission Date: 20251021
  Serious: Yes (Other)
  Sender: TAKEDA
  Company Number: CA-TAKEDA-2024TUS028387

PATIENT
  Sex: Male

DRUGS (14)
  1. VEDOLIZUMAB [Suspect]
     Active Substance: VEDOLIZUMAB
     Indication: Crohn^s disease
  2. VEDOLIZUMAB [Suspect]
     Active Substance: VEDOLIZUMAB
  3. VEDOLIZUMAB [Suspect]
     Active Substance: VEDOLIZUMAB
  4. IMURAN [Concomitant]
     Active Substance: AZATHIOPRINE
     Dosage: UNK UNK, QD
  5. METFORMIN [Concomitant]
     Active Substance: METFORMIN HYDROCHLORIDE
  6. ASPIRIN [Concomitant]
     Active Substance: ASPIRIN
  7. PANTOPRAZOLE [Concomitant]
     Active Substance: PANTOPRAZOLE
  8. METHOTREXATE [Concomitant]
     Active Substance: METHOTREXATE
  9. FOLIC ACID [Concomitant]
     Active Substance: FOLIC ACID
  10. VENTOLIN [Concomitant]
     Active Substance: ALBUTEROL SULFATE
  11. AZATHIOPRINE [Concomitant]
     Active Substance: AZATHIOPRINE
  12. CELECOXIB [Concomitant]
     Active Substance: CELECOXIB
  13. Fenofib [Concomitant]
  14. ROSUVASTATIN [Concomitant]
     Active Substance: ROSUVASTATIN

REACTIONS (2)
  - Crohn^s disease [Not Recovered/Not Resolved]
  - Therapeutic reaction time decreased [Not Recovered/Not Resolved]
